FAERS Safety Report 18623841 (Version 1)
Quarter: 2020Q4

REPORT INFORMATION
  Report Type: Spontaneous
  Country: US (occurrence: US)
  Receive Date: 20201216
  Receipt Date: 20201216
  Transmission Date: 20210114
  Serious: Yes (Other)
  Sender: FDA-Public Use
  Company Number: None

PATIENT
  Age: 30 Year
  Sex: Male

DRUGS (4)
  1. LORAZEPAM 1MG [Concomitant]
     Active Substance: LORAZEPAM
  2. VIMPAT 200MG [Concomitant]
  3. ZONISAMIDE 100MG [Concomitant]
     Active Substance: ZONISAMIDE
  4. XCOPRI [Suspect]
     Active Substance: CENOBAMATE
     Indication: EPILEPSY
     Route: 048
     Dates: start: 20200724, end: 20201124

REACTIONS (2)
  - Memory impairment [None]
  - Formication [None]

NARRATIVE: CASE EVENT DATE: 20201124
